FAERS Safety Report 10133800 (Version 2)
Quarter: 2014Q4

REPORT INFORMATION
  Report Type: Spontaneous
  Country: NL (occurrence: NL)
  Receive Date: 20140428
  Receipt Date: 20141031
  Transmission Date: 20150528
  Serious: Yes (Other)
  Sender: FDA-Public Use
  Company Number: NL-TEVA-477825ISR

PATIENT
  Sex: Female
  Weight: 74 kg

DRUGS (2)
  1. QVAR [Suspect]
     Active Substance: BECLOMETHASONE DIPROPIONATE
     Dosage: 400 MICROGRAM DAILY;
     Route: 055
     Dates: start: 20021017, end: 20121023
  2. RELPAX 40MG [Concomitant]
     Indication: MIGRAINE
     Route: 048
     Dates: start: 20050506

REACTIONS (7)
  - Glossodynia [Not Recovered/Not Resolved]
  - Device lead damage [Not Recovered/Not Resolved]
  - Pharyngeal oedema [Not Recovered/Not Resolved]
  - Pharyngeal erythema [Not Recovered/Not Resolved]
  - Abdominal discomfort [Not Recovered/Not Resolved]
  - Oropharyngeal pain [Not Recovered/Not Resolved]
  - Cough [Not Recovered/Not Resolved]

NARRATIVE: CASE EVENT DATE: 2007
